FAERS Safety Report 9973044 (Version 1)
Quarter: 2014Q1

REPORT INFORMATION
  Report Type: Spontaneous
  Country: US (occurrence: US)
  Receive Date: 20140306
  Receipt Date: 20140306
  Transmission Date: 20141002
  Serious: Yes (Other)
  Sender: FDA-Public Use
  Company Number: US-BRISTOL-MYERS SQUIBB COMPANY-20260170

PATIENT
  Age: 17 Year
  Sex: Female

DRUGS (2)
  1. KENALOG INJ [Suspect]
     Dosage: 1DF: 1INJ
     Dates: start: 20131205
  2. ZYRTEC [Concomitant]

REACTIONS (1)
  - Muscle disorder [Not Recovered/Not Resolved]
